FAERS Safety Report 23332176 (Version 3)
Quarter: 2024Q4

REPORT INFORMATION
  Report Type: Spontaneous
  Country: US (occurrence: US)
  Receive Date: 20231222
  Receipt Date: 20241209
  Transmission Date: 20250115
  Serious: No
  Sender: PFIZER
  Company Number: US-PFIZER INC-PV202300202965

PATIENT
  Age: 70 Year
  Sex: Female
  Weight: 70.9 kg

DRUGS (5)
  1. IBRANCE [Suspect]
     Active Substance: PALBOCICLIB
     Indication: Breast cancer metastatic
     Dosage: 125 MG, CYCLIC (DAILY FOR 21 DAYS, THEN OFF FOR 7 DAYS)
     Route: 048
     Dates: start: 20230506
  2. IBRANCE [Suspect]
     Active Substance: PALBOCICLIB
     Indication: Bone cancer metastatic
     Dosage: 125 MG, CYCLIC (1 CAP, ORAL, DAILY, DAILY FOR 21 DAYS, THEN OFF FOR 7 DAYS, # 21 CAP, 11 REFILL(S))
     Route: 048
     Dates: start: 20241203
  3. ANASTROZOLE [Suspect]
     Active Substance: ANASTROZOLE
     Indication: Breast cancer metastatic
     Dosage: 1 MG, DAILY
     Dates: start: 20230502
  4. ANASTROZOLE [Suspect]
     Active Substance: ANASTROZOLE
     Indication: Bone cancer metastatic
     Dosage: 1 MG, DAILY
     Dates: start: 20230506
  5. XANAX [Concomitant]
     Active Substance: ALPRAZOLAM
     Dosage: 1 MG, AS NEEDED (1 MG, 3X/DAY, PRN)
     Route: 048

REACTIONS (6)
  - Tremor [Unknown]
  - Decreased appetite [Unknown]
  - Fatigue [Not Recovered/Not Resolved]
  - Balance disorder [Not Recovered/Not Resolved]
  - Headache [Not Recovered/Not Resolved]
  - Neoplasm progression [Unknown]

NARRATIVE: CASE EVENT DATE: 20240101
